FAERS Safety Report 6335688-1 (Version None)
Quarter: 2009Q3

REPORT INFORMATION
  Report Type: 
  Country: None (occurrence: None)
  Receive Date: 20090828
  Receipt Date: 20090818
  Transmission Date: 20100115
  Serious: Yes (Hospitalization)
  Sender: FDA-Public Use
  Company Number: 239218K09USA

PATIENT
  Age: 58 Year
  Sex: Female
  Weight: 120 kg

DRUGS (8)
  1. REBIF [Suspect]
     Indication: MULTIPLE SCLEROSIS
     Dosage: 44 MCG, 3 IN 1 WEEKS, SUBCUTANEOUS
     Route: 058
     Dates: start: 20081005
  2. NEURONTIN [Concomitant]
  3. BACLOFEN [Concomitant]
  4. SANCTURA (ALL OTHER THERAPEUTIC PRODUCTS) [Concomitant]
  5. CELEBREX [Concomitant]
  6. TOPROL-XL [Concomitant]
  7. NAMENDA [Concomitant]
  8. LOW DOSE NALTREXOL (NALTREXONE) [Concomitant]

REACTIONS (1)
  - DEEP VEIN THROMBOSIS [None]
